FAERS Safety Report 5942423-5 (Version None)
Quarter: 2008Q4

REPORT INFORMATION
  Report Type: 
  Country: None (occurrence: None)
  Receive Date: 20081105
  Receipt Date: 20081024
  Transmission Date: 20090506
  Serious: Yes (Hospitalization)
  Sender: FDA-Public Use
  Company Number: DE-PFIZER INC-2006055385

PATIENT
  Sex: Male
  Weight: 83 kg

DRUGS (7)
  1. SU-011,248 [Suspect]
     Indication: METASTATIC RENAL CELL CARCINOMA
     Route: 048
     Dates: start: 20060116, end: 20060211
  2. SU-011,248 [Suspect]
     Route: 048
     Dates: start: 20060227, end: 20060326
  3. NOVONORM [Concomitant]
     Dosage: TEXT:UNKNOWN-FREQ:UNKNOWN
     Route: 048
     Dates: start: 19920101
  4. SIMVASTATIN [Concomitant]
     Dosage: TEXT:UNKNOWN-FREQ:UNKNOWN
     Route: 065
     Dates: start: 20000101, end: 20060825
  5. RIOPAN [Concomitant]
     Dates: start: 20060317, end: 20060324
  6. PANTOZOL [Concomitant]
     Dates: start: 20060324
  7. TORSEMIDE [Concomitant]
     Dates: start: 20060402, end: 20060402

REACTIONS (6)
  - DYSPNOEA [None]
  - NEOPLASM PROGRESSION [None]
  - PLEURAL EFFUSION [None]
  - SPINAL OSTEOARTHRITIS [None]
  - SYNCOPE [None]
  - VERTIGO [None]
